FAERS Safety Report 4400750-7 (Version None)
Quarter: 2004Q3

REPORT INFORMATION
  Report Type: 
  Country: None (occurrence: None)
  Receive Date: 20040714
  Receipt Date: 20040708
  Transmission Date: 20050211
  Serious: Yes (Hospitalization)
  Sender: FDA-Public Use
  Company Number: TPA2003A00092

PATIENT
  Age: 76 Year
  Sex: Male
  Weight: 90.7194 kg

DRUGS (11)
  1. ACTOS [Suspect]
     Indication: DIABETES MELLITUS NON-INSULIN-DEPENDENT
     Dosage: SEE IMAGE
     Route: 048
     Dates: start: 20011101
  2. GLUCOPHAGE [Concomitant]
  3. GLYBURIDE [Concomitant]
  4. ATENOLOL [Concomitant]
  5. AVAPRO [Concomitant]
  6. HYDROCHLOROTHIAZIDE [Concomitant]
  7. ZOCOR [Concomitant]
  8. FLOMAX [Concomitant]
  9. PROSCAR [Concomitant]
  10. CLARITIN [Concomitant]
  11. NITROQUICK (GLYCERYL TRINITRATE) [Concomitant]

REACTIONS (3)
  - ADVERSE EVENT [None]
  - BLADDER CANCER [None]
  - RENAL PAIN [None]
